FAERS Safety Report 16745324 (Version 2)
Quarter: 2019Q3

REPORT INFORMATION
  Report Type: Spontaneous
  Country: US (occurrence: US)
  Receive Date: 20190827
  Receipt Date: 20190828
  Transmission Date: 20191005
  Serious: Yes (Hospitalization, Other)
  Sender: FDA-Public Use
  Company Number: US-TEVA-2019-US-1098435

PATIENT
  Age: 89 Year
  Sex: Female

DRUGS (1)
  1. PERPHENAZINE 2 MG [Suspect]
     Active Substance: PERPHENAZINE
     Indication: NAUSEA
     Route: 065
     Dates: start: 20190719

REACTIONS (2)
  - Drug ineffective [Unknown]
  - Diarrhoea [Unknown]

NARRATIVE: CASE EVENT DATE: 20190722
